FAERS Safety Report 14944107 (Version 3)
Quarter: 2018Q2

REPORT INFORMATION
  Report Type: Spontaneous
  Country: FR (occurrence: FR)
  Receive Date: 20180528
  Receipt Date: 20180627
  Transmission Date: 20180711
  Serious: Yes (Death)
  Sender: FDA-Public Use
  Company Number: FR-MYLANLABS-2018M1035185

PATIENT
  Age: 62 Year
  Sex: Female

DRUGS (4)
  1. URSODEOXYCHOLIC ACID [Suspect]
     Active Substance: URSODIOL
     Indication: PROPHYLAXIS
     Dosage: UNK
     Route: 065
  2. CYCLOSPORIN A [Suspect]
     Active Substance: CYCLOSPORINE
     Indication: IMMUNOSUPPRESSION
     Dosage: UNK
     Route: 065
  3. DEFIBROTIDE [Suspect]
     Active Substance: DEFIBROTIDE (BOVINE)
     Dosage: 25 MG/KG, QD, 25 MG/KG PER DAY DIVIDED IN FOUR DAILY DOSES OF 6.25 MG/KG IN 5% DEXTROSE OVER 2 H
     Route: 065
  4. DEFIBROTIDE [Suspect]
     Active Substance: DEFIBROTIDE (BOVINE)
     Indication: PROPHYLAXIS
     Dosage: 25 MG/KG PER DAY DIVIDED IN FOUR DAILY DOSES OF 6.25 MG/KG IN 5% DEXTROSE OVER 2 H
     Route: 042

REACTIONS (2)
  - Venoocclusive liver disease [Fatal]
  - Product use in unapproved indication [Unknown]
